FAERS Safety Report 9628084 (Version 1)
Quarter: 2013Q4

REPORT INFORMATION
  Report Type: Spontaneous
  Country: US (occurrence: US)
  Receive Date: 20131017
  Receipt Date: 20131017
  Transmission Date: 20140711
  Serious: No
  Sender: FDA-Public Use
  Company Number: US-B.I. PHARMACEUTICALS,INC./RIDGEFIELD-2013-BI-31487BP

PATIENT
  Age: 64 Year
  Sex: Female
  Weight: 79 kg

DRUGS (8)
  1. ZANTAC (RANITIDINE HYDROCHLORIDE) [Suspect]
     Indication: DYSPEPSIA
     Route: 048
  2. ZANTAC (RANITIDINE HYDROCHLORIDE) [Suspect]
     Indication: DYSPEPSIA
     Dosage: 300 MG
     Route: 048
     Dates: start: 201309
  3. ZANTAC (RANITIDINE HYDROCHLORIDE) [Suspect]
     Indication: FLATULENCE
  4. METFORMIN [Concomitant]
     Indication: DIABETES MELLITUS
     Route: 048
  5. LIPITOR [Concomitant]
     Route: 048
  6. BABY ASPIRIN [Concomitant]
     Route: 048
  7. SOMA [Concomitant]
     Route: 048
  8. GLIPIZIDE [Concomitant]
     Route: 048

REACTIONS (3)
  - Drug ineffective [Not Recovered/Not Resolved]
  - Medication error [Recovered/Resolved]
  - Off label use [Not Recovered/Not Resolved]
